FAERS Safety Report 7597647-0 (Version None)
Quarter: 2011Q3

REPORT INFORMATION
  Report Type: 
  Country: None (occurrence: None)
  Receive Date: 20110708
  Receipt Date: 20110701
  Transmission Date: 20111222
  Serious: Yes (Death, Other)
  Sender: FDA-Public Use
  Company Number: IN-B.I. PHARMACEUTICALS,INC./RIDGEFIELD-2011-DE-03857GD

PATIENT
  Age: 50 Year
  Sex: Male

DRUGS (2)
  1. ASPIRIN [Suspect]
     Indication: MALIGNANT ATROPHIC PAPULOSIS
     Route: 048
  2. DIPYRIDAMOLE [Suspect]
     Indication: MALIGNANT ATROPHIC PAPULOSIS
     Route: 048

REACTIONS (4)
  - SUDDEN DEATH [None]
  - MELAENA [None]
  - DEEP VEIN THROMBOSIS [None]
  - HAEMOGLOBIN DECREASED [None]
